FAERS Safety Report 6313035-9 (Version None)
Quarter: 2009Q3

REPORT INFORMATION
  Report Type: 
  Country: None (occurrence: None)
  Receive Date: 20090818
  Receipt Date: 20080819
  Transmission Date: 20100115
  Serious: No
  Sender: FDA-Public Use
  Company Number: US-BRISTOL-MYERS SQUIBB COMPANY-14307342

PATIENT
  Sex: Male

DRUGS (1)
  1. GLUCOVANCE [Suspect]
     Indication: DIABETES MELLITUS

REACTIONS (1)
  - URINE ABNORMALITY [None]
